FAERS Safety Report 5641997-1 (Version None)
Quarter: 2008Q1

REPORT INFORMATION
  Report Type: 
  Country: None (occurrence: None)
  Receive Date: 20080131
  Receipt Date: 20071015
  Transmission Date: 20080703
  Serious: No
  Sender: FDA-Public Use
  Company Number: 163-21880-07100821

PATIENT
  Age: 56 Year
  Sex: Male

DRUGS (2)
  1. REVLIMID [Suspect]
     Indication: MULTIPLE MYELOMA
     Dosage: 25, 15 MG, DAILY FOR 21 DAYS, ORAL
     Route: 048
     Dates: start: 20070906, end: 20070927
  2. REVLIMID [Suspect]
     Indication: MULTIPLE MYELOMA
     Dosage: 25, 15 MG, DAILY FOR 21 DAYS, ORAL
     Route: 048
     Dates: start: 20071015

REACTIONS (6)
  - CONSTIPATION [None]
  - DRY SKIN [None]
  - EPISTAXIS [None]
  - FATIGUE [None]
  - NAUSEA [None]
  - PAIN [None]
